FAERS Safety Report 8422685-5 (Version None)
Quarter: 2012Q2

REPORT INFORMATION
  Report Type: 
  Country: None (occurrence: None)
  Receive Date: 20120608
  Receipt Date: 20120530
  Transmission Date: 20120825
  Serious: Yes (Hospitalization)
  Sender: FDA-Public Use
  Company Number: US-FRI-1000030988

PATIENT
  Age: 23 Year
  Sex: Male

DRUGS (3)
  1. RISPERDAL [Concomitant]
  2. LEXAPRO [Suspect]
     Indication: DEPRESSION
     Dosage: 10 MG
     Route: 048
     Dates: start: 20040101, end: 20041001
  3. LEXAPRO [Suspect]
     Dosage: 20 MG
     Route: 048
     Dates: start: 20041001, end: 20050101

REACTIONS (3)
  - PHYSICAL ASSAULT [None]
  - AGGRESSION [None]
  - AGITATION [None]
